FAERS Safety Report 9878816 (Version 1)
Quarter: 2014Q1

REPORT INFORMATION
  Report Type: Spontaneous
  Country: FR (occurrence: FR)
  Receive Date: 20140206
  Receipt Date: 20140206
  Transmission Date: 20141002
  Serious: Yes (Hospitalization, Other)
  Sender: FDA-Public Use
  Company Number: FR-GLAXOSMITHKLINE-B0964946A

PATIENT
  Age: 90 Year
  Sex: Female

DRUGS (13)
  1. LAMICTAL [Suspect]
     Indication: PRODUCT USED FOR UNKNOWN INDICATION
     Route: 048
     Dates: end: 20131218
  2. ZYLORIC [Suspect]
     Indication: PRODUCT USED FOR UNKNOWN INDICATION
     Dosage: 100MG PER DAY
     Route: 048
     Dates: end: 20131220
  3. PAROXETINE [Concomitant]
     Route: 065
  4. LEVOTHYROX [Concomitant]
     Route: 065
  5. MODOPAR [Concomitant]
     Route: 065
  6. HEMIGOXINE [Concomitant]
     Route: 065
  7. BISOPROLOL [Concomitant]
     Route: 065
  8. FUROSEMIDE [Concomitant]
     Route: 065
  9. COUMADINE [Concomitant]
     Route: 065
  10. COVERSYL [Concomitant]
     Route: 065
  11. PRAVASTATIN [Concomitant]
     Route: 065
  12. DIFFU-K [Concomitant]
     Route: 065
  13. INEXIUM [Concomitant]
     Route: 065

REACTIONS (4)
  - Rash maculo-papular [Recovered/Resolved]
  - Eosinophil count increased [Recovered/Resolved]
  - Epidermal necrosis [Unknown]
  - Toxic skin eruption [Unknown]
